FAERS Safety Report 17405621 (Version 1)
Quarter: 2020Q1

REPORT INFORMATION
  Report Type: Spontaneous
  Country: CA (occurrence: CA)
  Receive Date: 20200212
  Receipt Date: 20200212
  Transmission Date: 20200409
  Serious: Yes (Other)
  Sender: FDA-Public Use
  Company Number: CA-AUROBINDO-AUR-APL-2020-006238

PATIENT
  Sex: Female

DRUGS (2)
  1. DULOXETINE. [Suspect]
     Active Substance: DULOXETINE
     Indication: ARTHRALGIA
     Dosage: 30 MILLIGRAM
     Route: 065
  2. CELEBREX [Interacting]
     Active Substance: CELECOXIB
     Indication: EYE DISORDER
     Dosage: UNK
     Route: 065

REACTIONS (4)
  - Drug interaction [Unknown]
  - Product use in unapproved indication [Unknown]
  - Petechiae [Unknown]
  - Off label use [Unknown]
